FAERS Safety Report 7302359-4 (Version None)
Quarter: 2011Q1

REPORT INFORMATION
  Report Type: 
  Country: None (occurrence: None)
  Receive Date: 20110218
  Receipt Date: 20110210
  Transmission Date: 20110831
  Serious: Yes (Hospitalization, Other)
  Sender: FDA-Public Use
  Company Number: US-ABBOTT-11P-163-0704592-00

PATIENT
  Sex: Male
  Weight: 84.898 kg

DRUGS (5)
  1. HUMIRA [Suspect]
     Indication: CROHN'S DISEASE
     Route: 058
     Dates: start: 20091028, end: 20091217
  2. FLORASTOR [Concomitant]
     Indication: DIARRHOEA
     Dates: start: 20071106
  3. XIFAXAN [Concomitant]
     Indication: DIARRHOEA
     Dates: start: 20080527
  4. ONDANSERTRON HCL [Concomitant]
     Indication: NAUSEA
     Dates: start: 20091201, end: 20100201
  5. HUMIRA [Concomitant]
     Indication: CROHN'S DISEASE
     Route: 058
     Dates: start: 20090902

REACTIONS (1)
  - COLITIS [None]
